FAERS Safety Report 12636881 (Version 3)
Quarter: 2016Q4

REPORT INFORMATION
  Report Type: Report from Study
  Country: BR (occurrence: BR)
  Receive Date: 20160809
  Receipt Date: 20161031
  Transmission Date: 20170207
  Serious: Yes (Death, Hospitalization, Other)
  Sender: FDA-Public Use
  Company Number: PHHY2016BR096163

PATIENT
  Age: 58 Year
  Sex: Male
  Weight: 80 kg

DRUGS (1)
  1. SANDOSTATIN LAR DEPOT [Suspect]
     Active Substance: OCTREOTIDE ACETATE
     Indication: NEUROENDOCRINE TUMOUR
     Dosage: 30 MG, QMO, EVERY 28 DAYS
     Route: 030
     Dates: start: 20150730

REACTIONS (9)
  - Gastrointestinal haemorrhage [Unknown]
  - Hypophagia [Unknown]
  - Liver abscess [Unknown]
  - Infection [Unknown]
  - Post procedural complication [Unknown]
  - Hepatic infection [Unknown]
  - Pyrexia [Unknown]
  - Death [Fatal]
  - Weight decreased [Unknown]

NARRATIVE: CASE EVENT DATE: 20161005
